FAERS Safety Report 7265099-6 (Version None)
Quarter: 2011Q1

REPORT INFORMATION
  Report Type: 
  Country: None (occurrence: None)
  Receive Date: 20110131
  Receipt Date: 20110125
  Transmission Date: 20110831
  Serious: Yes (Other)
  Sender: FDA-Public Use
  Company Number: BR-PFIZER INC-2011003380

PATIENT
  Sex: Male
  Weight: 67 kg

DRUGS (9)
  1. LONITEN [Suspect]
     Indication: CORONARY ARTERY DISEASE
     Dosage: UNK
     Route: 048
     Dates: start: 19880101
  2. MONOCORDIL [Concomitant]
     Dosage: UNK
  3. CAPTOPRIL [Concomitant]
     Dosage: UNK
  4. AMLODIPINE [Concomitant]
     Dosage: UNK
  5. CLONAZEPAM [Concomitant]
     Dosage: UNK
  6. BROMAZEPAM [Concomitant]
     Dosage: UNK
  7. ENALAPRIL [Concomitant]
     Dosage: UNK
  8. LONITEN [Suspect]
     Indication: HYPERTENSION
  9. ATENOLOL [Concomitant]
     Dosage: UNK

REACTIONS (2)
  - BLOOD PRESSURE INCREASED [None]
  - CHEST PAIN [None]
